FAERS Safety Report 8447564-9 (Version None)
Quarter: 2012Q2

REPORT INFORMATION
  Report Type: 
  Country: None (occurrence: None)
  Receive Date: 20120619
  Receipt Date: 20120612
  Transmission Date: 20120825
  Serious: No
  Sender: FDA-Public Use
  Company Number: US-PFIZER INC-2012100933

PATIENT
  Sex: Male

DRUGS (4)
  1. DECADRON [Concomitant]
     Indication: RADIOTHERAPY TO BRAIN
  2. METFORMIN [Concomitant]
     Dosage: UNK, 2X/DAY
     Dates: end: 20120507
  3. XALKORI [Suspect]
     Indication: NON-SMALL CELL LUNG CANCER STAGE IV
     Dosage: 250 MG, 2X/DAY
     Route: 048
     Dates: start: 20120330, end: 20120504
  4. DECADRON [Concomitant]
     Indication: APPETITE DISORDER
     Dosage: 4 MG, 1X/DAY
     Dates: start: 20120301

REACTIONS (2)
  - DEHYDRATION [None]
  - AGEUSIA [None]
